FAERS Safety Report 21933773 (Version 2)
Quarter: 2023Q1

REPORT INFORMATION
  Report Type: Report from Study
  Country: US (occurrence: None)
  Receive Date: 20230201
  Receipt Date: 20230207
  Transmission Date: 20230417
  Serious: Yes (Other)
  Sender: FDA-Public Use
  Company Number: US-ROCHE-3273157

PATIENT
  Age: 60 Year
  Sex: Male
  Weight: 66.8 kg

DRUGS (5)
  1. ATEZOLIZUMAB [Suspect]
     Active Substance: ATEZOLIZUMAB
     Indication: Colorectal cancer metastatic
     Dosage: TOTAL DOSE ADMINISTERED THIS COURSE (DOSE) 840 MG, LAST ADMINISTERED DATE ON 06/DEC/2021, 840MG IV 3
     Route: 041
     Dates: start: 20210315
  2. BEVACIZUMAB [Suspect]
     Active Substance: BEVACIZUMAB
     Indication: Colorectal cancer metastatic
     Dosage: LAST ADMINISTERED DATE ON 06/DEC/2021, TOTAL DOSE ADMINISTERED THIS COURSE (DOSE) 4345 MG, 5MG/KG IV
     Route: 042
     Dates: start: 20210315
  3. FLUOROURACIL SODIUM [Suspect]
     Active Substance: FLUOROURACIL SODIUM
     Indication: Colorectal cancer metastatic
     Dosage: LAST ADMINISTERED ON 06/DEC/2021. TOTAL DOSE ADMINISTERED 750 MG. 400MG/M2 IV OVER 2-4 MINUTES ON DA
     Route: 042
     Dates: start: 20210315
  4. LEUCOVORIN CALCIUM [Suspect]
     Active Substance: LEUCOVORIN CALCIUM
     Indication: Colorectal cancer metastatic
     Dosage: LAST ADMINISTERED DATE ON 06/DEC/2021, TOTAL DOSE ADMINISTERED THIS COURSE (DOSE) 725 MG, 400MG/M2
     Route: 042
     Dates: start: 20210315
  5. OXALIPLATIN [Suspect]
     Active Substance: OXALIPLATIN
     Indication: Colorectal cancer metastatic
     Dosage: 85MG/M2 IV OVER 2 HOURS ON DAY 1, LAST ADMINISTERED DATE ON 19/JUL/2021. SUBSEQUENT DOSE ON 19/JUL/2
     Route: 042
     Dates: start: 20210315, end: 20210719

REACTIONS (1)
  - Pulmonary embolism [Recovered/Resolved with Sequelae]

NARRATIVE: CASE EVENT DATE: 20211214
